FAERS Safety Report 5064385-8 (Version None)
Quarter: 2006Q3

REPORT INFORMATION
  Report Type: 
  Country: None (occurrence: None)
  Receive Date: 20060728
  Receipt Date: 20060508
  Transmission Date: 20061208
  Serious: Yes (Hospitalization)
  Sender: FDA-Public Use
  Company Number: PHEH2006US06055

PATIENT
  Age: 89 Year
  Sex: Male

DRUGS (10)
  1. ZOMETA [Suspect]
     Indication: PROSTATE CANCER
     Dosage: UNK, MONTHLY
     Dates: start: 20060203
  2. LUPRON [Concomitant]
     Indication: PROSTATE CANCER
     Dosage: UNK, MONTHLY
  3. CASODEX [Concomitant]
     Indication: PROSTATE CANCER
     Dates: start: 20060201
  4. DOXAZOSIN MESYLATE [Concomitant]
     Indication: PROSTATE CANCER
     Dosage: 4 MG, HS
  5. HYDROCHLOROTHIAZIDE [Concomitant]
     Dosage: 25 MG, QAM
  6. MEDROL [Concomitant]
     Dosage: 4 MG, QAM
  7. ADVAIR DISKUS 100/50 [Concomitant]
     Indication: ASTHMA
     Dosage: 500MG/50MG, 1 PUFF BID
  8. SAW PALMETTO [Concomitant]
  9. VITAMIN D [Concomitant]
  10. CALCIUM GLUCONATE [Concomitant]

REACTIONS (6)
  - DEHYDRATION [None]
  - DIARRHOEA [None]
  - INFLUENZA [None]
  - NAUSEA [None]
  - SMALL INTESTINAL OBSTRUCTION [None]
  - VOMITING [None]
